FAERS Safety Report 16469783 (Version 1)
Quarter: 2019Q2

REPORT INFORMATION
  Report Type: Spontaneous
  Country: US (occurrence: US)
  Receive Date: 20190624
  Receipt Date: 20190624
  Transmission Date: 20190711
  Serious: No
  Sender: FDA-Public Use
  Company Number: US-SA-2019SA168783

PATIENT
  Sex: Female

DRUGS (2)
  1. OXYBUTYNIN. [Suspect]
     Active Substance: OXYBUTYNIN CHLORIDE
  2. AUBAGIO [Suspect]
     Active Substance: TERIFLUNOMIDE
     Dosage: 14 MG

REACTIONS (7)
  - Drug interaction [Unknown]
  - Constipation [Unknown]
  - Swelling face [Unknown]
  - Decreased appetite [Unknown]
  - Feeling abnormal [Unknown]
  - Peripheral swelling [Unknown]
  - Oedema [Unknown]
